FAERS Safety Report 5693940-7 (Version None)
Quarter: 2008Q2

REPORT INFORMATION
  Report Type: 
  Country: None (occurrence: None)
  Receive Date: 20080403
  Receipt Date: 20080402
  Transmission Date: 20081010
  Serious: Yes (Hospitalization, Other)
  Sender: FDA-Public Use
  Company Number: US-BOEHRINGER INGELHEIM GMBH, GERMANY-2008-BP-05082RO

PATIENT
  Sex: Male
  Weight: 86 kg

DRUGS (11)
  1. PREDNISONE [Suspect]
     Indication: PROSTATE CANCER METASTATIC
     Route: 048
     Dates: start: 20070628
  2. ENZASTAURIN [Suspect]
     Indication: PROSTATE CANCER METASTATIC
     Route: 048
     Dates: start: 20070701, end: 20070701
  3. ENZASTAURIN [Suspect]
     Route: 048
     Dates: start: 20070702
  4. DOCETAXEL [Suspect]
     Indication: PROSTATE CANCER METASTATIC
     Route: 042
     Dates: start: 20070628
  5. HYDROCHLOROTHIAZIDE [Concomitant]
     Dates: start: 20070427
  6. CALCIUM D [Concomitant]
     Dates: start: 20070427
  7. ZOLADEX [Concomitant]
     Dates: start: 20060612
  8. PLAVIX [Concomitant]
     Dates: start: 20060920, end: 20070825
  9. MONOPRIL [Concomitant]
     Dates: start: 20060712
  10. DEXAMETHASONE TAB [Concomitant]
     Dates: start: 20070628
  11. ZOCOR [Concomitant]
     Dates: start: 20070427

REACTIONS (2)
  - RENAL FAILURE [None]
  - THROMBOSIS [None]
